FAERS Safety Report 9657849 (Version 1)
Quarter: 2013Q4

REPORT INFORMATION
  Report Type: Spontaneous
  Country: US (occurrence: US)
  Receive Date: 20131030
  Receipt Date: 20131030
  Transmission Date: 20140711
  Serious: No
  Sender: FDA-Public Use
  Company Number: US-009507513-1310USA014267

PATIENT
  Sex: Female

DRUGS (3)
  1. MIRALAX [Suspect]
     Indication: CONSTIPATION
     Dosage: UNK, BID
     Route: 048
     Dates: start: 20131017, end: 20131019
  2. MIRALAX [Suspect]
     Indication: ABDOMINAL DISTENSION
  3. MIRALAX [Suspect]
     Indication: ABDOMINAL DISCOMFORT

REACTIONS (5)
  - Abnormal faeces [Not Recovered/Not Resolved]
  - Discomfort [Not Recovered/Not Resolved]
  - Gastrointestinal sounds abnormal [Not Recovered/Not Resolved]
  - Inappropriate schedule of drug administration [Unknown]
  - Drug effect decreased [Unknown]
